FAERS Safety Report 24288745 (Version 1)
Quarter: 2024Q3

REPORT INFORMATION
  Report Type: Spontaneous
  Country: FR (occurrence: FR)
  Receive Date: 20240906
  Receipt Date: 20240906
  Transmission Date: 20241016
  Serious: Yes (Other)
  Sender: AUROBINDO
  Company Number: FR-AFSSAPS-PP2024000921

PATIENT
  Age: 71 Year
  Sex: Male
  Weight: 85 kg

DRUGS (2)
  1. ACETAMINOPHEN [Suspect]
     Active Substance: ACETAMINOPHEN
     Indication: Pyrexia
     Dosage: UNK(UNKNOWN DOSE)
     Route: 048
     Dates: start: 20240708, end: 20240712
  2. ANTIPYRINE\LIDOCAINE [Suspect]
     Active Substance: ANTIPYRINE\LIDOCAINE
     Indication: Ear pain
     Dosage: UNK(UNKNOWN DOSE)
     Route: 001
     Dates: start: 20240708, end: 20240712

REACTIONS (1)
  - Fixed eruption [Not Recovered/Not Resolved]

NARRATIVE: CASE EVENT DATE: 20240708
